FAERS Safety Report 9264949 (Version 1)
Quarter: 2013Q2

REPORT INFORMATION
  Report Type: Spontaneous
  Country: US (occurrence: None)
  Receive Date: 20130426
  Receipt Date: 20130426
  Transmission Date: 20140414
  Serious: Yes (Other)
  Sender: FDA-Public Use
  Company Number: 001518039A

PATIENT
  Sex: Female

DRUGS (6)
  1. MEANINGFUL BEAUTY ANTIOXIDANT DAY CREME SPF 20 [Suspect]
     Dosage: TWICE DAILY DERMAL
     Dates: start: 20130227, end: 20130319
  2. MEANINGFUL BEAUTY CINDY CRAWFORD SKIN BRIGHTENING DECOLLETE AND NECK TREATMENT SPF 15 [Suspect]
     Dosage: TWICE DAILY DERMAL
     Dates: start: 20130227, end: 20130319
  3. TARKA [Concomitant]
  4. WELLBUTRIN [Concomitant]
  5. EFFEXOR [Concomitant]
  6. ADVAIR [Concomitant]

REACTIONS (3)
  - Psoriasis [None]
  - Skin mass [None]
  - Erythema [None]
